FAERS Safety Report 19491130 (Version 1)
Quarter: 2021Q3

REPORT INFORMATION
  Report Type: Spontaneous
  Country: US (occurrence: US)
  Receive Date: 20210705
  Receipt Date: 20210705
  Transmission Date: 20211014
  Serious: No
  Sender: FDA-Public Use
  Company Number: US-ORGANON-O2106USA002452

PATIENT
  Age: 36 Year
  Sex: Female

DRUGS (2)
  1. ESTROGEN NOS [Concomitant]
     Active Substance: ESTROGENS
     Indication: PERSISTENT GENITAL AROUSAL DISORDER
     Dosage: UNK
     Route: 061
     Dates: start: 2018
  2. NUVARING [Suspect]
     Active Substance: ETHINYL ESTRADIOL\ETONOGESTREL
     Indication: PERSISTENT GENITAL AROUSAL DISORDER
     Dosage: 1 RING
     Dates: start: 2018

REACTIONS (4)
  - Product use in unapproved indication [Unknown]
  - Condition aggravated [Recovering/Resolving]
  - Persistent genital arousal disorder [Recovering/Resolving]
  - Product prescribing issue [Unknown]

NARRATIVE: CASE EVENT DATE: 2018
